FAERS Safety Report 7316478-X (Version None)
Quarter: 2011Q1

REPORT INFORMATION
  Report Type: 
  Country: None (occurrence: None)
  Receive Date: 20110225
  Receipt Date: 20110216
  Transmission Date: 20110831
  Serious: Yes (Hospitalization)
  Sender: FDA-Public Use
  Company Number: DE-BAYER-2010-007926

PATIENT
  Sex: Male
  Weight: 85 kg

DRUGS (1)
  1. LEVITRA [Suspect]
     Dosage: 10 MG, UNK
     Route: 048
     Dates: start: 20101121

REACTIONS (5)
  - DEAFNESS UNILATERAL [None]
  - BALANCE DISORDER [None]
  - VESTIBULAR DISORDER [None]
  - TINNITUS [None]
  - DIZZINESS [None]
